FAERS Safety Report 22136088 (Version 2)
Quarter: 2023Q2

REPORT INFORMATION
  Report Type: Report from Study
  Country: US (occurrence: US)
  Receive Date: 20230324
  Receipt Date: 20230407
  Transmission Date: 20230721
  Serious: Yes (Death)
  Sender: FDA-Public Use
  Company Number: US-JNJFOC-20230238029

PATIENT
  Age: 76 Year
  Sex: Female
  Weight: 97.610 kg

DRUGS (15)
  1. INVEGA TRINZA [Suspect]
     Active Substance: PALIPERIDONE PALMITATE
     Indication: Product used for unknown indication
     Route: 030
  2. INVEGA TRINZA [Suspect]
     Active Substance: PALIPERIDONE PALMITATE
  3. INVEGA TRINZA [Suspect]
     Active Substance: PALIPERIDONE PALMITATE
  4. INVEGA SUSTENNA [Suspect]
     Active Substance: PALIPERIDONE PALMITATE
     Indication: Schizophrenia
     Dosage: 117 MG/0. 75 ML, DISPENSE:1; REFILLS: FIVE; START DATE: 04/03/2021; SIG: 1 SYRINGE
     Route: 030
     Dates: start: 20210304
  5. INVEGA SUSTENNA [Suspect]
     Active Substance: PALIPERIDONE PALMITATE
  6. INVEGA SUSTENNA [Suspect]
     Active Substance: PALIPERIDONE PALMITATE
  7. BENZTROPINE [Concomitant]
     Active Substance: BENZTROPINE
     Dosage: 2 MG TABLET- DISPENSE: 60; REFILLS: TWO, 1 TABLET ORAL TWICE A DAY
     Dates: start: 20210304
  8. DIVALPROEX SODIUM [Concomitant]
     Active Substance: DIVALPROEX SODIUM
     Dosage: DISPENSE:180; REFILLS: THREE; SIG: 2 TABLET SUSTAINED RELEASE 24 HR AT BEDTIME
     Route: 048
     Dates: start: 20200911
  9. DILTIAZEM [Concomitant]
     Active Substance: DILTIAZEM
     Dosage: DISPENSE: 180; REFILLS: THREE; SIG: 1 TABLET
     Route: 048
     Dates: start: 20200910
  10. ELIQUIS [Concomitant]
     Active Substance: APIXABAN
     Dosage: DISPENSE: 180; REFILLS: THREE;  SIG: 1 TABLET
     Route: 048
     Dates: start: 20200910
  11. LEVOTHYROXINE [Concomitant]
     Active Substance: LEVOTHYROXINE
     Dosage: 100 MCG, DISPENSE: 30; REFILLS: NO REFILLS; SIG: 1 CAPSULE ORAL EVERY DAY
     Dates: start: 20200510
  12. PRAVASTATIN [Concomitant]
     Active Substance: PRAVASTATIN
     Dosage: DISPENSE: 90; REFILLS: THREE; SIG: 1 TABLET  EVERY DAY
     Route: 048
     Dates: start: 20200910
  13. TRAZODONE [Concomitant]
     Active Substance: TRAZODONE HYDROCHLORIDE
     Dosage: DISPENSE: 90; REFILLS: THREE;SIG: 1 TABLET ORAL EVERY DAY
     Dates: start: 20200910
  14. PATANOL [Concomitant]
     Active Substance: OLOPATADINE HYDROCHLORIDE
     Indication: Eye pruritus
     Dosage: 0.1 % EYE DROPS- DISPENSE: 1; REFILLS: ELEVEN;  SIG: 1-2 DROPS OPHTHALMIC  OU PRN?I
     Dates: start: 20190611
  15. FOSAMAX [Concomitant]
     Active Substance: ALENDRONATE SODIUM
     Dosage: DISPENSE: 12; REFILLS: THREE;  SIG: 1 TABLET ORAL EVERY WEEK
     Dates: start: 20200910

REACTIONS (1)
  - Death [Fatal]
